FAERS Safety Report 9782496 (Version 1)
Quarter: 2013Q4

REPORT INFORMATION
  Report Type: Report from Study
  Country: PY (occurrence: PY)
  Receive Date: 20131226
  Receipt Date: 20131226
  Transmission Date: 20140711
  Serious: Yes (Hospitalization, Other)
  Sender: FDA-Public Use
  Company Number: PHHY2013PY150863

PATIENT
  Age: 82 Year
  Sex: Male
  Weight: 65 kg

DRUGS (4)
  1. GLIVEC [Suspect]
     Dosage: 400 MG, DAILY
     Route: 048
     Dates: start: 20031030, end: 20131201
  2. FLUTAMIDE [Concomitant]
     Indication: PROSTATE CANCER
     Dosage: UNK UKN, UNK
     Dates: start: 201103
  3. INSULIN [Concomitant]
     Indication: DIABETES MELLITUS
     Dosage: UNK UKN, UNK
     Dates: start: 1993
  4. METFORMINE [Concomitant]
     Indication: DIABETES MELLITUS
     Dosage: 1600 MG
     Dates: start: 2003

REACTIONS (2)
  - Pulmonary sepsis [Not Recovered/Not Resolved]
  - Pneumonia klebsiella [Unknown]
